FAERS Safety Report 4603265-6 (Version None)
Quarter: 2005Q1

REPORT INFORMATION
  Report Type: 
  Country: None (occurrence: None)
  Receive Date: 20050223
  Receipt Date: 20040723
  Transmission Date: 20050727
  Serious: Yes (Other)
  Sender: FDA-Public Use
  Company Number: PHEH2004US07283

PATIENT
  Sex: 0

DRUGS (1)
  1. DIOVAN [Suspect]

REACTIONS (1)
  - ANGIONEUROTIC OEDEMA [None]
